FAERS Safety Report 7748113-0 (Version None)
Quarter: 2011Q3

REPORT INFORMATION
  Report Type: 
  Country: None (occurrence: None)
  Receive Date: 20110913
  Receipt Date: 20110812
  Transmission Date: 20111222
  Serious: No
  Sender: FDA-Public Use
  Company Number: US-ALLERGAN-1110893US

PATIENT
  Age: 33 Year
  Sex: Female

DRUGS (2)
  1. ACZONE [Suspect]
     Indication: ACNE
     Dosage: 1 APPLICATION AT NIGHT
     Route: 061
     Dates: start: 20110715, end: 20110801
  2. SULFACETAMID [Concomitant]
     Indication: ACNE
     Dosage: IN THE MORNINGS

REACTIONS (3)
  - ERYTHEMA [None]
  - THERAPEUTIC RESPONSE DECREASED [None]
  - RASH [None]
